FAERS Safety Report 8366404-X (Version None)
Quarter: 2012Q2

REPORT INFORMATION
  Report Type: 
  Country: None (occurrence: None)
  Receive Date: 20120517
  Receipt Date: 20120509
  Transmission Date: 20120825
  Serious: Yes (Life-Threatening)
  Sender: FDA-Public Use
  Company Number: FR-PFIZER INC-2012117642

PATIENT
  Age: 30 Year
  Sex: Male

DRUGS (9)
  1. TOPIRAMATE [Concomitant]
  2. URBANYL [Concomitant]
  3. TRIMEPRAZINE TARTRATE [Concomitant]
  4. ZOLPIDEM [Concomitant]
  5. AMOXICILLIN AND CLAVULANATE POTASSIUM [Suspect]
     Indication: LUNG DISORDER
     Dosage: 2 G, 3X/DAY
     Route: 042
     Dates: start: 20120325, end: 20120327
  6. TRILEPTAL [Concomitant]
  7. PANTOPRAZOLE [Suspect]
     Dosage: 1 DF, 1X/DAY
     Route: 048
     Dates: start: 20120327, end: 20120327
  8. MIRTAZAPINE [Concomitant]
  9. AMIKACIN [Concomitant]

REACTIONS (1)
  - HEPATITIS FULMINANT [None]
